FAERS Safety Report 6088655-X (Version None)
Quarter: 2009Q1

REPORT INFORMATION
  Report Type: 
  Country: None (occurrence: None)
  Receive Date: 20090218
  Receipt Date: 20090218
  Transmission Date: 20090719
  Serious: Yes (Disabling, Other)
  Sender: FDA-Public Use
  Company Number: None

PATIENT
  Age: 19 Year
  Sex: Female
  Weight: 63.5036 kg

DRUGS (1)
  1. TYLENOL W/ CODEINE NO. 3 [Suspect]
     Indication: PHARYNGITIS STREPTOCOCCAL
     Dosage: X AS NEEDED PO TAKE ONCE
     Route: 048
     Dates: start: 20080301, end: 20080301

REACTIONS (1)
  - DRUG HYPERSENSITIVITY [None]
